FAERS Safety Report 8255189-3 (Version None)
Quarter: 2012Q1

REPORT INFORMATION
  Report Type: 
  Country: None (occurrence: None)
  Receive Date: 20120322
  Receipt Date: 20120213
  Transmission Date: 20120608
  Serious: Yes (Hospitalization)
  Sender: FDA-Public Use
  Company Number: UTC-015528

PATIENT
  Age: 21 Year
  Sex: Female
  Weight: 42.7 kg

DRUGS (5)
  1. DIURETICS (DIURETICS) [Concomitant]
  2. REVATIO [Concomitant]
  3. ADCIRCA [Concomitant]
  4. TYVASO [Suspect]
     Indication: PULMONARY HYPERTENSION
     Dosage: 18-54 MICROGRAMS (4 IN 1 D) , INHALATION
     Route: 055
     Dates: start: 20110420
  5. COUMADIN [Concomitant]

REACTIONS (1)
  - CARDIAC FAILURE [None]
